FAERS Safety Report 5089038-1 (Version None)
Quarter: 2006Q3

REPORT INFORMATION
  Report Type: 
  Country: None (occurrence: None)
  Receive Date: 20060825
  Receipt Date: 20060817
  Transmission Date: 20061208
  Serious: Yes (Hospitalization)
  Sender: FDA-Public Use
  Company Number: 2006SE04439

PATIENT
  Age: 25167 Day
  Sex: Male

DRUGS (3)
  1. SIMESTAT [Suspect]
     Indication: HYPERCHOLESTEROLAEMIA
     Route: 048
     Dates: start: 20060401, end: 20060624
  2. ASPIRIN [Concomitant]
  3. METOPROLOL TARTRATE [Concomitant]
     Route: 048

REACTIONS (2)
  - POLYNEUROPATHY [None]
  - RHABDOMYOLYSIS [None]
